FAERS Safety Report 6812141-X (Version None)
Quarter: 2010Q3

REPORT INFORMATION
  Report Type: 
  Country: None (occurrence: None)
  Receive Date: 20100701
  Receipt Date: 20100315
  Transmission Date: 20110219
  Serious: No
  Sender: FDA-Public Use
  Company Number: US-ABBOTT-10P-163-0633390-00

PATIENT
  Sex: Male
  Weight: 97.61 kg

DRUGS (3)
  1. RITONAVIR [Suspect]
     Indication: HIV INFECTION
     Dates: start: 20100201, end: 20100303
  2. REYATAZ [Concomitant]
     Indication: HIV INFECTION
     Dates: start: 20100201
  3. TRUVADA [Concomitant]
     Indication: HIV INFECTION
     Dates: start: 20100201

REACTIONS (4)
  - DIARRHOEA [None]
  - HEADACHE [None]
  - INCORRECT STORAGE OF DRUG [None]
  - NAUSEA [None]
